FAERS Safety Report 11581752 (Version 1)
Quarter: 2015Q4

REPORT INFORMATION
  Report Type: Spontaneous
  Country: US (occurrence: US)
  Receive Date: 20151001
  Receipt Date: 20151001
  Transmission Date: 20160304
  Serious: No
  Sender: FDA-Public Use
  Company Number: US-ROCHE-676257

PATIENT
  Age: 49 Year
  Sex: Male
  Weight: 78 kg

DRUGS (3)
  1. COPEGUS [Concomitant]
     Active Substance: RIBAVIRIN
     Route: 065
  2. PEGASYS [Suspect]
     Active Substance: PEGINTERFERON ALFA-2A
     Indication: HEPATITIS C
     Dosage: ROUTE: INJECTION, FORM: PRE-FILLED SYRINGE
     Route: 050
     Dates: start: 200902, end: 20091218
  3. VERAPAMIL [Concomitant]
     Active Substance: VERAPAMIL HYDROCHLORIDE
     Route: 065

REACTIONS (2)
  - Poor quality drug administered [Unknown]
  - No adverse event [Unknown]
